FAERS Safety Report 5641774-1 (Version None)
Quarter: 2008Q1

REPORT INFORMATION
  Report Type: 
  Country: None (occurrence: None)
  Receive Date: 20080227
  Receipt Date: 20080213
  Transmission Date: 20080703
  Serious: Yes (Hospitalization)
  Sender: FDA-Public Use
  Company Number: CN-TYCO HEALTHCARE/MALLINCKRODT-T200800214

PATIENT

DRUGS (1)
  1. MORPHINE [Suspect]
     Route: 042

REACTIONS (2)
  - DRUG ABUSE [None]
  - MEDIASTINITIS [None]
